FAERS Safety Report 11088154 (Version 1)
Quarter: 2015Q2

REPORT INFORMATION
  Report Type: Spontaneous
  Country: CA (occurrence: None)
  Receive Date: 20150501
  Receipt Date: 20150501
  Transmission Date: 20150821
  Serious: Yes (Hospitalization, Disabling)
  Sender: FDA-Public Use
  Company Number: None

PATIENT
  Age: 17 Year
  Sex: Male
  Weight: 88.91 kg

DRUGS (5)
  1. BUSPAR [Suspect]
     Active Substance: BUSPIRONE HYDROCHLORIDE
     Indication: ANXIETY
     Route: 048
     Dates: start: 20120507, end: 20131104
  2. TRILEPTAL [Concomitant]
     Active Substance: OXCARBAZEPINE
  3. VALPROIC ACID. [Concomitant]
     Active Substance: VALPROIC ACID
  4. GABAPENTIN. [Concomitant]
     Active Substance: GABAPENTIN
  5. MINOCYCYLINE [Concomitant]

REACTIONS (31)
  - Slow response to stimuli [None]
  - Dysarthria [None]
  - Headache [None]
  - Myalgia [None]
  - Asthenia [None]
  - Seizure [None]
  - Serotonin syndrome [None]
  - Ataxia [None]
  - Condition aggravated [None]
  - Muscle rigidity [None]
  - Aggression [None]
  - Complex partial seizures [None]
  - Confusional state [None]
  - Unresponsive to stimuli [None]
  - Temperature intolerance [None]
  - Increased appetite [None]
  - Dystonia [None]
  - Psychotic disorder [None]
  - Decreased interest [None]
  - Musculoskeletal stiffness [None]
  - Overdose [None]
  - Ocular hyperaemia [None]
  - Drooling [None]
  - Salivary hypersecretion [None]
  - Extrapyramidal disorder [None]
  - Dyskinesia [None]
  - Abnormal dreams [None]
  - Fatigue [None]
  - Akathisia [None]
  - Stupor [None]
  - Mydriasis [None]

NARRATIVE: CASE EVENT DATE: 201310
